FAERS Safety Report 23882419 (Version 3)
Quarter: 2024Q2

REPORT INFORMATION
  Report Type: Spontaneous
  Country: US (occurrence: US)
  Receive Date: 20240522
  Receipt Date: 20240613
  Transmission Date: 20240716
  Serious: Yes (Hospitalization)
  Sender: FDA-Public Use
  Company Number: US-NOVOPROD-1221975

PATIENT
  Sex: Male

DRUGS (1)
  1. OZEMPIC [Suspect]
     Active Substance: SEMAGLUTIDE
     Indication: Diabetes mellitus
     Dosage: 0.25 MG
     Route: 058

REACTIONS (8)
  - Intestinal stenosis [Unknown]
  - Dehydration [Unknown]
  - Illness [Unknown]
  - Dizziness [Unknown]
  - Fatigue [Unknown]
  - Muscle atrophy [Unknown]
  - Weight decreased [Unknown]
  - Fatigue [Unknown]
